FAERS Safety Report 9002796 (Version 1)
Quarter: 2013Q1

REPORT INFORMATION
  Report Type: Spontaneous
  Country: US (occurrence: US)
  Receive Date: 20130107
  Receipt Date: 20130107
  Transmission Date: 20140127
  Serious: Yes (Other)
  Sender: FDA-Public Use
  Company Number: US-GLAXOSMITHKLINE-A1005385A

PATIENT
  Age: 47 Year
  Sex: Female

DRUGS (11)
  1. BENLYSTA [Suspect]
     Indication: SYSTEMIC LUPUS ERYTHEMATOSUS
     Dosage: 750MG SINGLE DOSE
     Route: 042
     Dates: start: 201108, end: 201108
  2. METHOTREXATE [Concomitant]
  3. PREDNISONE [Concomitant]
  4. NEXIUM [Concomitant]
  5. VITAMIN B12 [Concomitant]
  6. TYLENOL [Concomitant]
  7. COLOSTRUM PLUS [Concomitant]
  8. TYLENOL PM [Concomitant]
  9. POTASSIUM GLUCONATE [Concomitant]
  10. NIFEDICAL XL [Concomitant]
  11. OLIVE LEAF EXTRACT [Concomitant]

REACTIONS (3)
  - Anaphylactic reaction [Recovered/Resolved]
  - Urticaria [Recovered/Resolved]
  - Dyspnoea [Recovered/Resolved]
